FAERS Safety Report 5900173-5 (Version None)
Quarter: 2008Q3

REPORT INFORMATION
  Report Type: 
  Country: None (occurrence: None)
  Receive Date: 20080924
  Receipt Date: 20080910
  Transmission Date: 20090109
  Serious: Yes (Death)
  Sender: FDA-Public Use
  Company Number: S07-IRL-05115-01

PATIENT
  Age: 65 Year
  Sex: Male

DRUGS (3)
  1. LEXAPRO [Suspect]
     Indication: DEPRESSION
     Dosage: 10 MG (10 MG, 1 IN 1 D), ORAL
     Route: 048
     Dates: end: 20070618
  2. LIPOSTAT (PRAVASTATIN SODIUM) (PRAVASTATIN SODIUM) [Concomitant]
  3. ZISPIN (MIRTAZAPINE) (MIRTAZAPINE) [Concomitant]

REACTIONS (3)
  - COMPLETED SUICIDE [None]
  - INTENTIONAL OVERDOSE [None]
  - POISONING [None]
